FAERS Safety Report 4651275-5 (Version None)
Quarter: 2005Q2

REPORT INFORMATION
  Report Type: 
  Country: None (occurrence: None)
  Receive Date: 20050331
  Receipt Date: 20050131
  Transmission Date: 20051028
  Serious: No
  Sender: FDA-Public Use
  Company Number: 05P-163-0288897-00

PATIENT
  Age: 85 Year
  Sex: Female
  Weight: 41.7309 kg

DRUGS (6)
  1. HUMIRA [Suspect]
     Indication: RHEUMATOID ARTHRITIS
     Dosage: 40 MG, 1 IN 2 WK, SUBCUTANEOUS
     Route: 058
     Dates: start: 20041001, end: 20050101
  2. DIGOXIN [Concomitant]
  3. NODANAL [Concomitant]
  4. ALENDRONATE SODIUM [Concomitant]
  5. METHOTREXATE [Concomitant]
  6. FOLIC ACID [Concomitant]

REACTIONS (2)
  - RASH [None]
  - SINUSITIS [None]
